FAERS Safety Report 5244208-4 (Version None)
Quarter: 2007Q1

REPORT INFORMATION
  Report Type: 
  Country: None (occurrence: None)
  Receive Date: 20070222
  Receipt Date: 20070215
  Transmission Date: 20070707
  Serious: Yes (Death)
  Sender: FDA-Public Use
  Company Number: GB-GLAXOSMITHKLINE-B0459250A

PATIENT
  Age: 60 Year
  Sex: Male

DRUGS (7)
  1. PAROXETINE HCL [Suspect]
     Indication: ANXIETY
     Route: 048
     Dates: start: 20060906
  2. METFORMIN HCL [Suspect]
     Route: 048
     Dates: start: 20040402
  3. ASPIRIN [Concomitant]
     Route: 048
     Dates: start: 20050914
  4. DIAZEPAM [Concomitant]
     Dosage: 2MG THREE TIMES PER DAY
  5. PERINDOPRIL ERBUMINE [Concomitant]
     Indication: HYPERTENSION
     Route: 048
     Dates: start: 20050202
  6. SALBUTAMOL [Concomitant]
     Route: 055
  7. SIMVASTATIN [Concomitant]
     Route: 048
     Dates: start: 20040726

REACTIONS (2)
  - COMPLETED SUICIDE [None]
  - OVERDOSE [None]
